FAERS Safety Report 7426041-8 (Version None)
Quarter: 2011Q2

REPORT INFORMATION
  Report Type: 
  Country: None (occurrence: None)
  Receive Date: 20110420
  Receipt Date: 20101014
  Transmission Date: 20111010
  Serious: Yes (Hospitalization, Other)
  Sender: FDA-Public Use
  Company Number: US-BAYER-200935647NA

PATIENT
  Age: 26 Year
  Sex: Female
  Weight: 86 kg

DRUGS (7)
  1. YAZ [Suspect]
     Indication: PREMENSTRUAL SYNDROME
  2. YASMIN [Suspect]
     Indication: ACNE
  3. TALWIN NX [Concomitant]
     Indication: PAIN MANAGEMENT
     Dosage: 1 MG, QD
     Route: 048
  4. YASMIN [Suspect]
     Indication: CONTRACEPTION
     Dosage: UNK UNK, UNK
     Route: 048
     Dates: start: 20070501, end: 20070801
  5. YASMIN [Suspect]
     Indication: PREMENSTRUAL SYNDROME
  6. YAZ [Suspect]
     Indication: CONTRACEPTION
     Dosage: UNK UNK, UNK
     Route: 048
     Dates: start: 20070501, end: 20070801
  7. YAZ [Suspect]
     Indication: ACNE

REACTIONS (9)
  - NAUSEA [None]
  - PULMONARY EMBOLISM [None]
  - DEEP VEIN THROMBOSIS [None]
  - DIZZINESS [None]
  - PAIN IN EXTREMITY [None]
  - INDURATION [None]
  - THROMBOSIS [None]
  - DYSPNOEA [None]
  - CHEST PAIN [None]
